FAERS Safety Report 10430438 (Version 1)
Quarter: 2014Q3

REPORT INFORMATION
  Report Type: Spontaneous
  Country: JP (occurrence: JP)
  Receive Date: 20140904
  Receipt Date: 20140904
  Transmission Date: 20150326
  Serious: Yes (Death, Other)
  Sender: FDA-Public Use
  Company Number: JP-MYLANLABS-2014M1003404

PATIENT

DRUGS (8)
  1. LITHIUM CARBONATE. [Suspect]
     Active Substance: LITHIUM CARBONATE
     Dosage: 600 MG, UNK
  2. HALOPERIDOL. [Concomitant]
     Active Substance: HALOPERIDOL
     Indication: SCHIZOAFFECTIVE DISORDER
     Dosage: 9 MG, QD
  3. RISPERIDONE. [Suspect]
     Active Substance: RISPERIDONE
     Indication: SCHIZOAFFECTIVE DISORDER
     Dosage: 6 MG, UNK
  4. VALPROATE [Suspect]
     Active Substance: VALPROATE SODIUM
     Dosage: 600 MG, UNK
  5. FLUPHENAZINE [Suspect]
     Active Substance: FLUPHENAZINE
     Dosage: 25 MG, MONTHLY
  6. ZOTEPINE [Suspect]
     Active Substance: ZOTEPINE
     Indication: SCHIZOAFFECTIVE DISORDER
     Dosage: 150 MG, UNK
  7. BIPERIDEN [Concomitant]
     Active Substance: BIPERIDEN
     Indication: SCHIZOAFFECTIVE DISORDER
     Dosage: 6 MG, QD
  8. LITHIUM CARBONATE. [Suspect]
     Active Substance: LITHIUM CARBONATE
     Dosage: 800 MG, UNK

REACTIONS (2)
  - Neuroleptic malignant syndrome [Unknown]
  - Respiratory failure [Fatal]

NARRATIVE: CASE EVENT DATE: 20130226
